FAERS Safety Report 14663960 (Version 1)
Quarter: 2018Q1

REPORT INFORMATION
  Report Type: Report from Study
  Country: CN (occurrence: CN)
  Receive Date: 20180321
  Receipt Date: 20180321
  Transmission Date: 20180509
  Serious: Yes (Hospitalization)
  Sender: FDA-Public Use
  Company Number: CN-SA-2018SA075883

PATIENT
  Age: 26 Year
  Sex: Male
  Weight: 80 kg

DRUGS (1)
  1. THYMOGLOBULINE [Suspect]
     Active Substance: LAPINE T-LYMPHOCYTE IMMUNE GLOBULIN
     Route: 042
     Dates: start: 20130205, end: 20130207

REACTIONS (1)
  - Chronic hepatitis [Recovered/Resolved]

NARRATIVE: CASE EVENT DATE: 20130619
